FAERS Safety Report 17769990 (Version 1)
Quarter: 2020Q2

REPORT INFORMATION
  Report Type: Spontaneous
  Country: US (occurrence: US)
  Receive Date: 20200511
  Receipt Date: 20200511
  Transmission Date: 20200714
  Serious: No
  Sender: FDA-Public Use
  Company Number: None

PATIENT
  Age: 63 Year
  Sex: Female

DRUGS (11)
  1. CAMBIA [Concomitant]
     Active Substance: DICLOFENAC POTASSIUM
  2. VISATRIL [Concomitant]
  3. GINGER ROOT [Concomitant]
     Active Substance: GINGER
  4. FIORICET [Concomitant]
     Active Substance: ACETAMINOPHEN\BUTALBITAL\CAFFEINE
  5. AIMOVIG [Suspect]
     Active Substance: ERENUMAB-AOOE
     Indication: MIGRAINE
     Dosage: ?          QUANTITY:10 DF DOSAGE FORM;?
     Route: 058
     Dates: start: 20190528
  6. LATANOPROST. [Concomitant]
     Active Substance: LATANOPROST
  7. RED YEAST RICE [Concomitant]
     Active Substance: DIETARY SUPPLEMENT
  8. LOSARTAN. [Concomitant]
     Active Substance: LOSARTAN
  9. BLACK COHOSH [Concomitant]
     Active Substance: BLACK COHOSH
  10. CINNAMON. [Concomitant]
     Active Substance: CINNAMON
  11. MELATONIN [Concomitant]
     Active Substance: MELATONIN

REACTIONS (2)
  - Muscle tightness [None]
  - Injection site pain [None]

NARRATIVE: CASE EVENT DATE: 20200420
